FAERS Safety Report 4897306-9 (Version None)
Quarter: 2005Q4

REPORT INFORMATION
  Report Type: 
  Country: None (occurrence: None)
  Receive Date: 20051223
  Receipt Date: 20050920
  Transmission Date: 20060501
  Serious: No
  Sender: FDA-Public Use
  Company Number: 05P-163-0311332-00

PATIENT
  Age: 64 Year
  Sex: Female
  Weight: 102 kg

DRUGS (12)
  1. HUMIRA [Suspect]
     Indication: RHEUMATOID ARTHRITIS
     Dosage: 40 MG, 1 IN 2 WK, SUBCUTANEOUS
     Route: 058
     Dates: start: 20040101, end: 20050801
  2. HUMIRA [Suspect]
     Indication: RHEUMATOID ARTHRITIS
     Dosage: 40 MG, 1 IN 2 WK, SUBCUTANEOUS
     Route: 058
     Dates: start: 20050911
  3. SULFASALAZINE [Concomitant]
  4. FOLIC ACID [Concomitant]
  5. METHOTREXATE SODIUM [Concomitant]
  6. THEO-DUR [Concomitant]
  7. DIOVAN [Concomitant]
  8. LEVOTHYROXINE SODIUM [Concomitant]
  9. GLUCOPHAGE [Concomitant]
  10. INSULIN [Concomitant]
  11. CALCIUM WITH VITAMIN D [Concomitant]
  12. ALENDRONATE SODIUM [Concomitant]

REACTIONS (1)
  - URINARY TRACT INFECTION [None]
